FAERS Safety Report 4963201-X (Version None)
Quarter: 2006Q2

REPORT INFORMATION
  Report Type: 
  Country: None (occurrence: None)
  Receive Date: 20060405
  Receipt Date: 20060327
  Transmission Date: 20061013
  Serious: Yes (Death, Other)
  Sender: FDA-Public Use
  Company Number: ES-AVENTIS-200611883EU

PATIENT
  Age: 50 Year
  Sex: Male
  Weight: 70 kg

DRUGS (4)
  1. SEGURIL [Suspect]
     Indication: RENAL DISORDER
     Route: 048
     Dates: start: 20040101, end: 20040429
  2. MEGEFREN [Suspect]
     Indication: ANOREXIA
     Route: 048
     Dates: start: 20040901, end: 20050429
  3. NORVASC [Suspect]
     Indication: MALIGNANT HYPERTENSION
     Route: 048
     Dates: start: 20040101, end: 20040429
  4. OMEPRAZOLE [Concomitant]
     Indication: PROPHYLAXIS
     Route: 048
     Dates: start: 20040101, end: 20040429

REACTIONS (3)
  - DEATH [None]
  - GALLBLADDER DISORDER [None]
  - HEPATITIS CHOLESTATIC [None]
